FAERS Safety Report 25497777 (Version 1)
Quarter: 2025Q3

REPORT INFORMATION
  Report Type: Spontaneous
  Country: EU (occurrence: EU)
  Receive Date: 20250701
  Receipt Date: 20250701
  Transmission Date: 20251020
  Serious: Yes (Hospitalization)
  Sender: ACCORD
  Company Number: None

PATIENT
  Age: 64 Year
  Sex: Female

DRUGS (9)
  1. DAPTOMYCIN [Suspect]
     Active Substance: DAPTOMYCIN
     Indication: Abdominal infection
     Dosage: 800 MG (1.6 VIAL) EVERY 24 HOURS, STRENGTH: 500 MG SOLUTION FOR INJECTION FOR INFUSION
     Dates: start: 20240127, end: 20240206
  2. MEROPENEM [Suspect]
     Active Substance: MEROPENEM
     Indication: Abdominal infection
     Dosage: 1 G (1 VIAL), EVERY 8 HOURS, STRENGTH: 1,000 MG SOLUTION FOR INJECTION
     Dates: start: 20240128, end: 20240206
  3. ACETAMINOPHEN [Concomitant]
     Active Substance: ACETAMINOPHEN
     Indication: Pyrexia
     Dosage: 1 G (100 ML) EVERY 8 HOURS, 1,000 MG SOLUTION FOR INJECTION FOR INFUSION 100 ML
     Dates: start: 20240126, end: 20240218
  4. ENOXAPARIN SODIUM [Concomitant]
     Active Substance: ENOXAPARIN SODIUM
     Indication: Prophylaxis
     Dosage: 40 MG (1 PRE-FILLED SYRINGE), AT 20 HOURS, STRENGTH:  40 MG (4,000 IU) SOLUTION FOR INJECTION
     Dates: start: 20240127, end: 20240226
  5. OMEPRAZOLE [Concomitant]
     Active Substance: OMEPRAZOLE
     Indication: Prophylaxis
     Dosage: 20 MILLIGRAM (1 CAPSULE) EVERY 24 H
     Dates: start: 20240126
  6. AMITRIPTYLINE [Concomitant]
     Active Substance: AMITRIPTYLINE
     Indication: Fibromyalgia
     Dosage: 25 MG (1 CAPSULE) EVERY 24 H, STRENGTH: 25 MG CAPSULE
     Dates: start: 20240127
  7. LORMETAZEPAM [Concomitant]
     Active Substance: LORMETAZEPAM
     Indication: Depression
     Dosage: 2 MG (2 TABLETS) AT 23H, STRENGTH: 1 MG TABLET
     Dates: start: 20110315
  8. PIPERACILLIN AND TAZOBACTAM [Concomitant]
     Active Substance: PIPERACILLIN SODIUM\TAZOBACTAM SODIUM
     Indication: Abdominal infection
     Dosage: 4 G (1 VIAL) EVERY 6H. STRENGTH: 4,000 MG/500 MG SOLUTION FOR INJECTION
     Dates: start: 20240127, end: 20240128
  9. CEFTRIAXONE [Concomitant]
     Active Substance: CEFTRIAXONE
     Indication: Abdominal infection
     Dosage: 2 G(1 VIAL) AT 9 HOURS, 2,000 MG SOLUTION FOR INTRAVENOUS INJECTION
     Dates: start: 20240126, end: 20240126

REACTIONS (1)
  - Hepatic cytolysis [Recovered/Resolved]

NARRATIVE: CASE EVENT DATE: 20240129
